FAERS Safety Report 7411255-3 (Version None)
Quarter: 2011Q2

REPORT INFORMATION
  Report Type: 
  Country: None (occurrence: None)
  Receive Date: 20110413
  Receipt Date: 20100519
  Transmission Date: 20111010
  Serious: No
  Sender: FDA-Public Use
  Company Number: US-BRISTOL-MYERS SQUIBB COMPANY-15084783

PATIENT
  Age: 67 Year
  Sex: Female

DRUGS (2)
  1. RADIATION THERAPY [Suspect]
     Indication: HEAD AND NECK CANCER
     Dosage: 1DF=2250CGY 9 FRACTIONS; TDD:7000CGY IN 33 TRT. INT ON 20FE09;29DEC09 TO 20JA2010;23MR2010(5000CGY)
     Dates: start: 20081222
  2. ERBITUX [Suspect]
     Indication: HEAD AND NECK CANCER

REACTIONS (2)
  - RASH GENERALISED [None]
  - ORAL CANDIDIASIS [None]
